FAERS Safety Report 9101714 (Version 1)
Quarter: 2013Q1

REPORT INFORMATION
  Report Type: Spontaneous
  Country: US (occurrence: US)
  Receive Date: 20130218
  Receipt Date: 20130218
  Transmission Date: 20140127
  Serious: Yes (Hospitalization)
  Sender: FDA-Public Use
  Company Number: US-BAYER-2013-020453

PATIENT
  Age: 87 Year
  Sex: Female

DRUGS (13)
  1. XARELTO [Suspect]
     Indication: CEREBROVASCULAR ACCIDENT PROPHYLAXIS
     Route: 048
  2. XARELTO [Interacting]
     Indication: ATRIAL FIBRILLATION
     Route: 048
  3. ACETYLSALICYLIC ACID [Interacting]
     Route: 048
  4. ALLOPURINOL [Concomitant]
     Dosage: 75 MG, QD
     Route: 048
  5. VITAMIN C [Concomitant]
     Route: 048
  6. AVAPRO [Concomitant]
     Dosage: 300 MG, QD
     Route: 048
  7. AMLODIPINE [Concomitant]
     Route: 048
  8. UNKNOWN [Concomitant]
     Route: 048
  9. RANEXA [Concomitant]
     Dosage: 500 MG, BID
     Route: 048
  10. NITROSTAT [Concomitant]
     Route: 048
  11. METOPROLOL [Concomitant]
     Dosage: 12.5 MG, QD
     Route: 048
  12. LISINOPRIL [Concomitant]
     Dosage: 40 MG, QD
     Route: 048
  13. LIPITOR [Concomitant]
     Dosage: 40 MG, QD
     Route: 048

REACTIONS (3)
  - Anaemia [Unknown]
  - Gastrointestinal haemorrhage [Unknown]
  - Product quality issue [None]
